FAERS Safety Report 20320522 (Version 2)
Quarter: 2022Q1

REPORT INFORMATION
  Report Type: Spontaneous
  Country: US (occurrence: US)
  Receive Date: 20220111
  Receipt Date: 20220316
  Transmission Date: 20220423
  Serious: No
  Sender: FDA-Public Use
  Company Number: US-GLENMARK PHARMACEUTICALS-2021GMK069116

PATIENT

DRUGS (11)
  1. GABAPENTIN [Suspect]
     Active Substance: GABAPENTIN
     Indication: Pain
     Dosage: 6 DOSAGE FORM, QD, (1 TABLET A DAY EVERY 4 HOURS)
     Route: 048
     Dates: start: 202009
  2. GABAPENTIN [Suspect]
     Active Substance: GABAPENTIN
     Indication: Nerve injury
  3. VICODIN [Concomitant]
     Active Substance: ACETAMINOPHEN\HYDROCODONE BITARTRATE
     Indication: Pain
     Dosage: 300 MG 3X A DAY BUT NOT SURE
     Route: 048
     Dates: start: 2019
  4. METOPROLOL [Concomitant]
     Active Substance: METOPROLOL
     Indication: Hypertension
     Dosage: UNK
     Route: 048
  5. TAMSULOSIN [Concomitant]
     Active Substance: TAMSULOSIN
     Indication: Prostatomegaly
     Dosage: 4 MILLIGRAM, QD
     Route: 048
  6. WARFARIN [Concomitant]
     Active Substance: WARFARIN
     Indication: Drug therapy
     Dosage: 9 MILLIGRAM, QD
     Route: 048
  7. MONTELUKAST [Concomitant]
     Active Substance: MONTELUKAST SODIUM
     Indication: Product used for unknown indication
     Dosage: 10 MILLIGRAM, QD
     Route: 048
  8. ZOLPIDEM [Concomitant]
     Active Substance: ZOLPIDEM TARTRATE
     Indication: Sleep disorder
     Dosage: 10 MILLIGRAM, QD
     Route: 048
  9. AMITRIPTYLINE [Concomitant]
     Active Substance: AMITRIPTYLINE
     Indication: Dyspnoea
     Dosage: 25 MILLIGRAM, QD
     Route: 048
  10. ALBUTEROL [Concomitant]
     Active Substance: ALBUTEROL
     Indication: Chronic obstructive pulmonary disease
     Dosage: 2 PUFFS
  11. FLUTICASONE FUROATE\UMECLIDINIUM BROMIDE\VILANTEROL TRIFENATATE [Concomitant]
     Active Substance: FLUTICASONE FUROATE\UMECLIDINIUM BROMIDE\VILANTEROL TRIFENATATE
     Indication: Chronic obstructive pulmonary disease
     Dosage: (1 PUFF EVERY DAY)

REACTIONS (4)
  - Stress [Unknown]
  - Product administration error [Unknown]
  - Anxiety [Unknown]
  - Product contamination physical [Unknown]

NARRATIVE: CASE EVENT DATE: 20210101
